FAERS Safety Report 19654496 (Version 3)
Quarter: 2021Q3

REPORT INFORMATION
  Report Type: Report from Study
  Country: US (occurrence: US)
  Receive Date: 20210803
  Receipt Date: 20210908
  Transmission Date: 20211014
  Serious: Yes (Hospitalization)
  Sender: FDA-Public Use
  Company Number: NVSC2021US166603

PATIENT
  Age: 51 Year
  Sex: Female
  Weight: 59.86 kg

DRUGS (5)
  1. WARFARIN [Concomitant]
     Active Substance: WARFARIN
     Indication: PULMONARY ARTERIAL HYPERTENSION
     Dosage: UNK
     Route: 065
  2. ADCIRCA [Concomitant]
     Active Substance: TADALAFIL
     Indication: PULMONARY ARTERIAL HYPERTENSION
     Dosage: UNK
     Route: 065
  3. TREPROSTINIL. [Suspect]
     Active Substance: TREPROSTINIL
     Indication: PULMONARY ARTERIAL HYPERTENSION
     Dosage: UNK, CONT (32 NG/KG/MIN)
     Route: 058
     Dates: start: 20210702
  4. OPSUMIT [Concomitant]
     Active Substance: MACITENTAN
     Indication: PULMONARY ARTERIAL HYPERTENSION
     Dosage: UNK
     Route: 065
  5. REMODULIN [Concomitant]
     Active Substance: TREPROSTINIL
     Indication: PULMONARY ARTERIAL HYPERTENSION
     Dosage: UNK
     Route: 065

REACTIONS (8)
  - Palpitations [Unknown]
  - Dermatitis contact [Unknown]
  - Hypotension [Unknown]
  - Wrong technique in product usage process [Unknown]
  - Device issue [Unknown]
  - Injection site reaction [Unknown]
  - Atrial fibrillation [Unknown]
  - Oxygen saturation decreased [Unknown]

NARRATIVE: CASE EVENT DATE: 20210720
